FAERS Safety Report 25113935 (Version 1)
Quarter: 2025Q1

REPORT INFORMATION
  Report Type: Spontaneous
  Country: US (occurrence: None)
  Receive Date: 20250323
  Receipt Date: 20250323
  Transmission Date: 20250409
  Serious: Yes (unspecified)
  Sender: FDA-CTU
  Company Number: None

PATIENT
  Age: 54 Year
  Sex: Female
  Weight: 69.75 kg

DRUGS (13)
  1. TRIKAFTA [Suspect]
     Active Substance: ELEXACAFTOR\IVACAFTOR\TEZACAFTOR
     Indication: Cystic fibrosis
     Route: 048
  2. CREON [Concomitant]
     Active Substance: PANCRELIPASE AMYLASE\PANCRELIPASE LIPASE\PANCRELIPASE PROTEASE
  3. TRIKAFTA [Concomitant]
     Active Substance: ELEXACAFTOR\IVACAFTOR\TEZACAFTOR
  4. PRAVASTATIN [Concomitant]
     Active Substance: PRAVASTATIN
  5. BRIMONIDINE [Concomitant]
     Active Substance: BRIMONIDINE TARTRATE
  6. ADMELOG [Concomitant]
     Active Substance: INSULIN LISPRO
  7. VITAMINS [Concomitant]
     Active Substance: VITAMINS
  8. ASPIRIN [Concomitant]
     Active Substance: ASPIRIN
  9. MAGNESIUM [Concomitant]
     Active Substance: MAGNESIUM
  10. MVW COMPLETE ADEK VITAMINS [Concomitant]
  11. KORVENA BLUE [Concomitant]
  12. DIETARY SUPPLEMENT\HERBALS\MILK THISTLE [Concomitant]
     Active Substance: MILK THISTLE
  13. CLARITIN [Concomitant]
     Active Substance: LORATADINE

REACTIONS (15)
  - Speech disorder [None]
  - Dysarthria [None]
  - Tongue disorder [None]
  - Brain fog [None]
  - Disturbance in attention [None]
  - Fatigue [None]
  - Hyperhidrosis [None]
  - Menopause [None]
  - Heavy menstrual bleeding [None]
  - Atrophic vulvovaginitis [None]
  - Diarrhoea [None]
  - Hepatic pain [None]
  - Liver disorder [None]
  - Vision blurred [None]
  - Hypoaesthesia oral [None]

NARRATIVE: CASE EVENT DATE: 20250119
